FAERS Safety Report 13030976 (Version 1)
Quarter: 2016Q4

REPORT INFORMATION
  Report Type: Spontaneous
  Country: US (occurrence: US)
  Receive Date: 20161215
  Receipt Date: 20161215
  Transmission Date: 20170207
  Serious: No
  Sender: FDA-Public Use
  Company Number: US-TARO-2016TAR00128

PATIENT
  Sex: Female
  Weight: 63.49 kg

DRUGS (3)
  1. HYDROCORTISONE CREAM USP 1% (OTC) [Suspect]
     Active Substance: HYDROCORTISONE
     Indication: ECZEMA
  2. HYDROCORTISONE CREAM USP 2.5% [Suspect]
     Active Substance: HYDROCORTISONE
     Dosage: UNK, AS NEEDED
     Route: 061
     Dates: start: 201505, end: 201602
  3. HYDROCORTISONE CREAM USP 2.5% [Suspect]
     Active Substance: HYDROCORTISONE
     Indication: ECZEMA
     Dosage: UNK, UP TO 2X/DAY
     Route: 061
     Dates: start: 20150522, end: 201505

REACTIONS (2)
  - Drug ineffective [Not Recovered/Not Resolved]
  - Eczema [Not Recovered/Not Resolved]

NARRATIVE: CASE EVENT DATE: 201505
